FAERS Safety Report 9641072 (Version 1)
Quarter: 2013Q4

REPORT INFORMATION
  Report Type: Report from Study
  Country: US (occurrence: US)
  Receive Date: 20131023
  Receipt Date: 20131023
  Transmission Date: 20140711
  Serious: No
  Sender: FDA-Public Use
  Company Number: US-ABBVIE-13P-163-1045841-00

PATIENT
  Sex: Female
  Weight: 57.2 kg

DRUGS (5)
  1. LUPRON DEPOT [Suspect]
     Indication: ENDOMETRIOSIS
     Route: 030
     Dates: start: 20121030
  2. CYMBALTA [Concomitant]
     Indication: ENDOMETRIOSIS
  3. AYGESTIN [Concomitant]
     Indication: PRODUCT USED FOR UNKNOWN INDICATION
  4. ADVIL [Concomitant]
     Indication: PRODUCT USED FOR UNKNOWN INDICATION
     Dosage: 3-4 PILLS EVERY 4-6 HOURS
  5. VICODIN [Concomitant]
     Indication: PRODUCT USED FOR UNKNOWN INDICATION
     Dosage: 1-2 PILLS TAKEN TWICE SINCE STARTING LUPRON

REACTIONS (4)
  - Muscle spasms [Unknown]
  - Endometriosis [Unknown]
  - Injection site pain [Unknown]
  - Vaginal haemorrhage [Unknown]
